FAERS Safety Report 4998917-2 (Version None)
Quarter: 2006Q2

REPORT INFORMATION
  Report Type: 
  Country: None (occurrence: None)
  Receive Date: 20060510
  Receipt Date: 20060501
  Transmission Date: 20061013
  Serious: Yes (Death, Other)
  Sender: FDA-Public Use
  Company Number: US-MERCK-0605USA00590

PATIENT
  Age: 84 Year
  Sex: Female
  Weight: 66 kg

DRUGS (8)
  1. VIOXX [Suspect]
     Indication: OSTEOARTHRITIS
     Route: 048
  2. DARVOCET [Concomitant]
     Route: 065
  3. PAXIL [Concomitant]
     Route: 065
  4. BEXTRA [Concomitant]
     Route: 065
  5. AUGMENTIN '125' [Concomitant]
     Route: 065
  6. ATIVAN [Concomitant]
     Route: 065
  7. MYLANTA [Concomitant]
     Route: 065
  8. TUMS [Concomitant]
     Route: 065

REACTIONS (3)
  - CEREBROVASCULAR ACCIDENT [None]
  - DEATH [None]
  - MYOCARDIAL INFARCTION [None]
